FAERS Safety Report 4499700-7 (Version None)
Quarter: 2004Q4

REPORT INFORMATION
  Report Type: 
  Country: None (occurrence: None)
  Receive Date: 20041112
  Receipt Date: 20040930
  Transmission Date: 20050328
  Serious: Yes (Death, Hospitalization, Other)
  Sender: FDA-Public Use
  Company Number: US-BRISTOL-MYERS SQUIBB COMPANY-12718730

PATIENT
  Age: 82 Year
  Sex: Female
  Weight: 50 kg

DRUGS (1)
  1. ABILIFY [Suspect]
     Indication: DEPRESSION
     Route: 048
     Dates: start: 20040309, end: 20040311

REACTIONS (9)
  - COMMUNICATION DISORDER [None]
  - DEMENTIA [None]
  - DRUG INEFFECTIVE [None]
  - FALL [None]
  - FEEDING DISORDER [None]
  - GAIT DISTURBANCE [None]
  - NUCHAL RIGIDITY [None]
  - RESTLESSNESS [None]
  - TORTICOLLIS [None]
